FAERS Safety Report 9719050 (Version 2)
Quarter: 2013Q4

REPORT INFORMATION
  Report Type: Report from Study
  Country: IE (occurrence: IE)
  Receive Date: 20131127
  Receipt Date: 20131223
  Transmission Date: 20140711
  Serious: Yes (Hospitalization, Other)
  Sender: FDA-Public Use
  Company Number: IE-ABBVIE-13P-229-1173326-00

PATIENT
  Age: 51 Year
  Sex: Female

DRUGS (6)
  1. HUMIRA [Suspect]
     Indication: COLITIS ULCERATIVE
     Route: 058
     Dates: start: 20130913
  2. HUMIRA [Suspect]
     Route: 058
  3. HUMIRA [Suspect]
     Route: 058
     Dates: start: 20131219
  4. VITAMIN D [Concomitant]
     Indication: PRODUCT USED FOR UNKNOWN INDICATION
     Dosage: UNKNOWN
     Route: 065
  5. PREDNISOLONE [Concomitant]
     Indication: PRODUCT USED FOR UNKNOWN INDICATION
     Dosage: UNKNOWN
     Route: 065
  6. SALAFAC [Concomitant]
     Indication: PRODUCT USED FOR UNKNOWN INDICATION
     Dosage: UNKNOWN
     Route: 065

REACTIONS (4)
  - Faecal incontinence [Not Recovered/Not Resolved]
  - Haematochezia [Not Recovered/Not Resolved]
  - Lower respiratory tract infection [Recovered/Resolved]
  - Alopecia [Recovered/Resolved]
